FAERS Safety Report 5502262-6 (Version None)
Quarter: 2007Q4

REPORT INFORMATION
  Report Type: 
  Country: None (occurrence: None)
  Receive Date: 20071030
  Receipt Date: 20071022
  Transmission Date: 20080405
  Serious: Yes (Other)
  Sender: FDA-Public Use
  Company Number: US-ELI_LILLY_AND_COMPANY-US200710005373

PATIENT
  Age: 30 Year
  Sex: Male

DRUGS (2)
  1. HUMULIN N [Suspect]
  2. HUMULIN R [Suspect]

REACTIONS (3)
  - BLINDNESS [None]
  - PANCREAS TRANSPLANT [None]
  - RENAL FAILURE [None]
